FAERS Safety Report 9755990 (Version 2)
Quarter: 2014Q1

REPORT INFORMATION
  Report Type: Spontaneous
  Country: US (occurrence: US)
  Receive Date: 20131213
  Receipt Date: 20140214
  Transmission Date: 20141002
  Serious: Yes (Hospitalization)
  Sender: FDA-Public Use
  Company Number: US-GLAXOSMITHKLINE-A1052861A

PATIENT
  Age: 86 Year
  Sex: Male

DRUGS (2)
  1. ADVAIR [Suspect]
     Indication: PRODUCT USED FOR UNKNOWN INDICATION
     Dosage: 1PUFF PER DAY
     Route: 055
  2. CONCURRENT MEDICATIONS [Concomitant]

REACTIONS (4)
  - Spinal operation [Unknown]
  - Cough [Unknown]
  - Drug administration error [Unknown]
  - Product quality issue [Unknown]
